FAERS Safety Report 4457319-8 (Version None)
Quarter: 2004Q3

REPORT INFORMATION
  Report Type: 
  Country: None (occurrence: None)
  Receive Date: 20040922
  Receipt Date: 20040902
  Transmission Date: 20050211
  Serious: Yes (Hospitalization)
  Sender: FDA-Public Use
  Company Number: USA030126063

PATIENT
  Age: 88 Year
  Sex: Female
  Weight: 66 kg

DRUGS (7)
  1. FORTEO [Suspect]
     Indication: OSTEOPOROSIS
     Dosage: 20 UG DAY
     Dates: start: 20030109
  2. FORTEO [Suspect]
     Indication: SPINAL FRACTURE
     Dosage: 20 UG DAY
     Dates: start: 20030109
  3. FOSAMAX [Concomitant]
  4. ACTONEL [Concomitant]
  5. DILANTIN [Concomitant]
  6. ZESTRIL [Concomitant]
  7. ASPIRIN [Concomitant]

REACTIONS (11)
  - ACCIDENTAL NEEDLE STICK [None]
  - ASTHENIA [None]
  - BLOOD PRESSURE DIASTOLIC DECREASED [None]
  - CONVULSION [None]
  - DISORIENTATION [None]
  - DRUG INTERACTION [None]
  - DRUG LEVEL DECREASED [None]
  - HYPONATRAEMIA [None]
  - LOSS OF CONSCIOUSNESS [None]
  - MEDICATION ERROR [None]
  - PHARMACEUTICAL PRODUCT COMPLAINT [None]
